FAERS Safety Report 20612168 (Version 1)
Quarter: 2022Q1

REPORT INFORMATION
  Report Type: Spontaneous
  Country: US (occurrence: None)
  Receive Date: 20220318
  Receipt Date: 20220318
  Transmission Date: 20220424
  Serious: Yes (Disabling)
  Sender: FDA-Public Use
  Company Number: None

PATIENT
  Age: 64 Year
  Sex: Female
  Weight: 41.4 kg

DRUGS (2)
  1. REMERON [Suspect]
     Active Substance: MIRTAZAPINE
     Indication: Weight decreased
     Dosage: OTHER QUANTITY : 1 TABLET(S);?FREQUENCY : DAILY;?
     Route: 048
     Dates: start: 20200101, end: 20201230
  2. REMERON [Suspect]
     Active Substance: MIRTAZAPINE
     Indication: Depression

REACTIONS (5)
  - Abnormal dreams [None]
  - Anger [None]
  - Emotional poverty [None]
  - Bladder discomfort [None]
  - Suicidal ideation [None]

NARRATIVE: CASE EVENT DATE: 20200808
